FAERS Safety Report 8053551-5 (Version None)
Quarter: 2012Q1

REPORT INFORMATION
  Report Type: 
  Country: None (occurrence: None)
  Receive Date: 20120118
  Receipt Date: 20120113
  Transmission Date: 20120608
  Serious: Yes (Life-Threatening, Hospitalization)
  Sender: FDA-Public Use
  Company Number: GB-MERCK-1201GBR00012

PATIENT
  Age: 59 Year
  Sex: Female
  Weight: 105 kg

DRUGS (14)
  1. OMEPRAZOLE [Concomitant]
     Route: 065
     Dates: start: 20110705
  2. PREDNISOLONE [Suspect]
     Route: 065
     Dates: start: 20110816, end: 20110826
  3. FLUCONAZOLE [Concomitant]
     Route: 065
     Dates: start: 20110816
  4. FLUTICASONE [Concomitant]
     Route: 065
     Dates: start: 20110705
  5. FUSIDIC ACID [Concomitant]
     Route: 065
     Dates: start: 20111014
  6. PRINIVIL [Suspect]
     Route: 048
     Dates: start: 20101101
  7. AMOXICILLIN [Suspect]
     Route: 065
     Dates: start: 20110816, end: 20110821
  8. BENDROFLUMETHIAZIDE [Concomitant]
     Route: 065
     Dates: start: 20110705, end: 20110823
  9. FLUOXETINE [Concomitant]
     Route: 065
     Dates: start: 20110705
  10. ESTRADIOL VALERATE [Concomitant]
     Route: 065
     Dates: start: 20110706, end: 20110928
  11. FUROSEMIDE [Concomitant]
     Route: 065
     Dates: start: 20110705
  12. TIOTROPIUM BROMIDE [Concomitant]
     Route: 065
     Dates: start: 20110705
  13. CETIRIZINE HYDROCHLORIDE [Concomitant]
     Route: 065
     Dates: start: 20110705
  14. ACETAMINOPHEN AND CODEINE [Concomitant]
     Route: 065
     Dates: start: 20110705

REACTIONS (2)
  - DRUG INTERACTION [None]
  - ANAPHYLACTIC REACTION [None]
